FAERS Safety Report 14743003 (Version 2)
Quarter: 2018Q2

REPORT INFORMATION
  Report Type: Spontaneous
  Country: None (occurrence: US)
  Receive Date: 20180410
  Receipt Date: 20180420
  Transmission Date: 20180711
  Serious: Yes (Hospitalization)
  Sender: FDA-Public Use
  Company Number: US-MEDAC PHARMA, INC.-2045496

PATIENT
  Age: 82 Year
  Sex: Male
  Weight: 84.4 kg

DRUGS (1)
  1. RASUVO [Suspect]
     Active Substance: METHOTREXATE SODIUM
     Indication: RHEUMATOID ARTHRITIS
     Dates: start: 20170212, end: 201711

REACTIONS (2)
  - Pneumonia [Unknown]
  - Pulmonary fibrosis [Unknown]
